FAERS Safety Report 23942663 (Version 1)
Quarter: 2024Q2

REPORT INFORMATION
  Report Type: Spontaneous
  Country: US (occurrence: None)
  Receive Date: 20240605
  Receipt Date: 20240605
  Transmission Date: 20240716
  Serious: Yes (Hospitalization)
  Sender: FDA-Public Use
  Company Number: None

PATIENT
  Age: 52 Year
  Sex: Male
  Weight: 73.5 kg

DRUGS (2)
  1. CARBOPLATIN [Suspect]
     Active Substance: CARBOPLATIN
     Dates: end: 20220718
  2. PACLITAXEL [Suspect]
     Active Substance: PACLITAXEL
     Dates: end: 20220718

REACTIONS (5)
  - Oesophagectomy [None]
  - Neurological decompensation [None]
  - Incision site abscess [None]
  - Intracranial mass [None]
  - Brain cancer metastatic [None]

NARRATIVE: CASE EVENT DATE: 20221018
